FAERS Safety Report 5087746-X (Version None)
Quarter: 2006Q3

REPORT INFORMATION
  Report Type: 
  Country: None (occurrence: None)
  Receive Date: 20060824
  Receipt Date: 20041104
  Transmission Date: 20061208
  Serious: Yes (Hospitalization, Disabling)
  Sender: FDA-Public Use
  Company Number: US-ROCHE-385658

PATIENT
  Age: 34 Year
  Sex: Female
  Weight: 65.8 kg

DRUGS (14)
  1. ACCUTANE [Suspect]
     Route: 048
     Dates: start: 19910615, end: 19920615
  2. ACCUTANE [Suspect]
     Route: 048
     Dates: start: 19870120, end: 19881015
  3. ACCUTANE [Suspect]
     Route: 048
     Dates: start: 19940615, end: 19940615
  4. ACCUTANE [Suspect]
     Route: 048
     Dates: start: 19970615, end: 19980615
  5. BIRTH CONTROL PILLS [Concomitant]
     Route: 048
  6. ELDOQUIN [Concomitant]
     Dates: start: 19870115
  7. ERYTHROMYCIN [Concomitant]
     Route: 061
     Dates: start: 19870115
  8. SULFACET-R [Concomitant]
     Dates: start: 19870115, end: 19881015
  9. CLEOCIN T [Concomitant]
     Indication: ACNE
  10. MINOCIN [Concomitant]
  11. ERYTHROMYCIN [Concomitant]
     Route: 048
  12. BENZAMYCIN [Concomitant]
     Indication: ACNE
  13. RETIN-A [Concomitant]
     Indication: ACNE
  14. BENZACLIN [Concomitant]
     Indication: ACNE

REACTIONS (60)
  - ABDOMINAL STRANGULATED HERNIA [None]
  - ANAEMIA [None]
  - ANAL FISSURE [None]
  - ANAL STENOSIS [None]
  - ARTHRALGIA [None]
  - ASTHENIA [None]
  - BUTTOCK PAIN [None]
  - COLITIS [None]
  - COLITIS ULCERATIVE [None]
  - CONVULSION [None]
  - CROHN'S DISEASE [None]
  - DECREASED APPETITE [None]
  - DEPRESSION [None]
  - DRUG EXPOSURE DURING PREGNANCY [None]
  - DUODENAL ULCER [None]
  - ERUCTATION [None]
  - EYE HAEMORRHAGE [None]
  - FIBROADENOMA [None]
  - GASTRITIS [None]
  - GASTROINTESTINAL DISORDER [None]
  - GASTROINTESTINAL HAEMORRHAGE [None]
  - HAEMORRHOIDS [None]
  - HYPERCOAGULATION [None]
  - HYPERGLYCAEMIA [None]
  - HYPERNATRAEMIA [None]
  - HYPOKALAEMIA [None]
  - ILEUS [None]
  - INFLAMMATORY BOWEL DISEASE [None]
  - INFLUENZA LIKE ILLNESS [None]
  - INSOMNIA [None]
  - INTESTINAL HAEMORRHAGE [None]
  - INTESTINAL OBSTRUCTION [None]
  - IRON DEFICIENCY ANAEMIA [None]
  - JUGULAR VEIN THROMBOSIS [None]
  - LEUKOCYTOSIS [None]
  - LOCAL SWELLING [None]
  - MALNUTRITION [None]
  - MULTI-ORGAN DISORDER [None]
  - NAUSEA [None]
  - OEDEMA PERIPHERAL [None]
  - OESOPHAGITIS [None]
  - PHLEBITIS [None]
  - PLATELET COUNT INCREASED [None]
  - PNEUMONIA [None]
  - PNEUMOTHORAX [None]
  - PREGNANCY TEST POSITIVE [None]
  - PROCTITIS ULCERATIVE [None]
  - PSEUDOMEMBRANOUS COLITIS [None]
  - PSEUDOPOLYPOSIS [None]
  - PULMONARY EMBOLISM [None]
  - PYREXIA [None]
  - RASH [None]
  - RECTAL HAEMORRHAGE [None]
  - RENAL FAILURE [None]
  - SACRAL PAIN [None]
  - THROMBOPHLEBITIS SUPERFICIAL [None]
  - URINARY TRACT INFECTION [None]
  - VAGINAL FISTULA [None]
  - VOMITING [None]
  - WEIGHT DECREASED [None]
